FAERS Safety Report 9670607 (Version 1)
Quarter: 2013Q4

REPORT INFORMATION
  Report Type: Spontaneous
  Country: US (occurrence: US)
  Receive Date: 20131106
  Receipt Date: 20131106
  Transmission Date: 20140711
  Serious: No
  Sender: FDA-Public Use
  Company Number: US-BIOGENIDEC-2013BI104770

PATIENT
  Sex: Female

DRUGS (2)
  1. AVONEX [Suspect]
     Indication: MULTIPLE SCLEROSIS
     Route: 030
     Dates: start: 20100730
  2. AMPYRA [Concomitant]

REACTIONS (20)
  - Fungal infection [Not Recovered/Not Resolved]
  - Candida infection [Not Recovered/Not Resolved]
  - Sinusitis [Not Recovered/Not Resolved]
  - Mental impairment [Not Recovered/Not Resolved]
  - Stress [Not Recovered/Not Resolved]
  - Dysentery [Recovered/Resolved]
  - Back disorder [Not Recovered/Not Resolved]
  - Constipation [Unknown]
  - Cystitis [Not Recovered/Not Resolved]
  - Patient-device incompatibility [Recovered/Resolved]
  - Haemorrhage [Recovered/Resolved]
  - Local swelling [Recovered/Resolved]
  - Swelling face [Recovered/Resolved]
  - Malaise [Recovered/Resolved]
  - Depression [Not Recovered/Not Resolved]
  - Nausea [Unknown]
  - Dizziness [Unknown]
  - Multiple sclerosis relapse [Recovered/Resolved]
  - Flushing [Recovered/Resolved]
  - Pain [Unknown]
